FAERS Safety Report 5239230-8 (Version None)
Quarter: 2007Q1

REPORT INFORMATION
  Report Type: 
  Country: None (occurrence: None)
  Receive Date: 20061208
  Receipt Date: 20050606
  Transmission Date: 20070707
  Serious: Yes (Other)
  Sender: FDA-Public Use
  Company Number: 2005UW08686

PATIENT
  Age: 68 Year
  Sex: Male
  Weight: 98.883 kg

DRUGS (7)
  1. CRESTOR [Suspect]
     Indication: BLOOD CHOLESTEROL INCREASED
     Dosage: 10 MG PO
     Route: 048
     Dates: start: 20040101
  2. PREVACID [Concomitant]
  3. CORGARD [Concomitant]
  4. NORVASC [Concomitant]
  5. PRINIVIL [Concomitant]
  6. ALLOPURINOL [Concomitant]
  7. KLOR-CON [Concomitant]

REACTIONS (3)
  - DYSURIA [None]
  - NOCTURIA [None]
  - PAIN IN EXTREMITY [None]
